FAERS Safety Report 9354462 (Version 2)
Quarter: 2013Q3

REPORT INFORMATION
  Report Type: Spontaneous
  Country: FR (occurrence: FR)
  Receive Date: 20130618
  Receipt Date: 20130916
  Transmission Date: 20140515
  Serious: Yes (Hospitalization)
  Sender: FDA-Public Use
  Company Number: FR-TEVA-412942ISR

PATIENT
  Age: 91 Year
  Sex: Male
  Weight: 64 kg

DRUGS (6)
  1. FUROSEMIDE 40 MG TEVA [Suspect]
     Dosage: 60 MILLIGRAM DAILY;
     Route: 048
  2. FLUTICASONE [Concomitant]
     Indication: CHRONIC OBSTRUCTIVE PULMONARY DISEASE
     Dosage: 1000 MICROGRAM DAILY;
     Route: 048
     Dates: start: 200707
  3. FLUVASTATIN [Concomitant]
     Indication: DYSLIPIDAEMIA
     Dosage: 40 MILLIGRAM DAILY;
     Route: 048
     Dates: start: 200707
  4. OSLIF [Concomitant]
     Indication: CHRONIC OBSTRUCTIVE PULMONARY DISEASE
     Dosage: 150 MICROGRAM DAILY;
     Route: 048
     Dates: start: 20111201
  5. MEMANTINE [Concomitant]
     Indication: DEMENTIA
     Dosage: 10 MILLIGRAM DAILY;
     Route: 048
     Dates: start: 20110929
  6. TIOTROPIUM [Concomitant]
     Indication: CHRONIC OBSTRUCTIVE PULMONARY DISEASE
     Dosage: 18 MICROGRAM DAILY;
     Route: 048
     Dates: start: 20120704

REACTIONS (2)
  - Somnolence [Unknown]
  - Cardiac failure [Recovered/Resolved]
